FAERS Safety Report 11139875 (Version 4)
Quarter: 2022Q4

REPORT INFORMATION
  Report Type: Spontaneous
  Country: US (occurrence: US)
  Receive Date: 20150527
  Receipt Date: 20221220
  Transmission Date: 20230112
  Serious: No
  Sender: FDA-Public Use
  Company Number: US-PFIZER INC-2015165209

PATIENT
  Age: 55 Year
  Sex: Female
  Weight: 73 kg

DRUGS (4)
  1. TIKOSYN [Suspect]
     Active Substance: DOFETILIDE
     Indication: Atrial fibrillation
     Dosage: 500 UG, 2X/DAY
     Dates: start: 2014
  2. TIKOSYN [Suspect]
     Active Substance: DOFETILIDE
     Indication: Atrial flutter
     Dosage: 500 MG, 2X/DAY (STRENGTH: 500 MG BID)
  3. TIKOSYN [Suspect]
     Active Substance: DOFETILIDE
     Indication: Tachycardia
  4. XARELTO [Concomitant]
     Active Substance: RIVAROXABAN
     Indication: Anticoagulant therapy
     Dosage: UNK

REACTIONS (2)
  - Fatigue [Recovered/Resolved]
  - Wrong strength [Unknown]

NARRATIVE: CASE EVENT DATE: 20140101
